FAERS Safety Report 7928220 (Version 6)
Quarter: 2020Q4

REPORT INFORMATION
  Report Type: Spontaneous
  Country: JP (occurrence: JP)
  Receive Date: 20110503
  Receipt Date: 20201023
  Transmission Date: 20210114
  Serious: Yes (Death, Other)
  Sender: FDA-Public Use
  Company Number: JP-PFIZER INC-2011091177

PATIENT
  Age: 63 Year
  Sex: Female
  Weight: 75.2 kg

DRUGS (16)
  1. MUCODYNE [Concomitant]
     Active Substance: CARBOCYSTEINE
     Indication: GASTRITIS
     Dosage: 250 MG, 3X/DAY
     Route: 048
     Dates: start: 20110401, end: 20110415
  2. AMLODIN [Concomitant]
     Active Substance: AMLODIPINE BESYLATE
     Indication: HYPERTENSION
     Dosage: 5 MG, 1X/DAY
     Route: 048
     Dates: start: 20110331, end: 20110412
  3. OMEPRAZON [Concomitant]
     Active Substance: OMEPRAZOLE
     Indication: GASTRIC ULCER
     Dosage: 20 MG, 1X/DAY
     Route: 048
     Dates: start: 20100628, end: 20110829
  4. CELECOXIB. [Concomitant]
     Active Substance: CELECOXIB
     Indication: SPINAL STENOSIS
     Dosage: 200 MG, 2X/DAY
     Route: 048
     Dates: start: 20091202
  5. PASETOCIN [Concomitant]
     Active Substance: AMOXICILLIN
     Indication: SINUSITIS
     Dosage: 500 MG, 3X/DAY
     Route: 048
     Dates: start: 20110401
  6. VITAMINS NOS [Concomitant]
     Active Substance: VITAMINS
     Indication: SPINAL STENOSIS
     Dosage: 5 UG, 3X/DAY
     Route: 048
     Dates: start: 20100630
  7. METHOTREXATE. [Concomitant]
     Active Substance: METHOTREXATE
     Indication: RHEUMATOID ARTHRITIS
     Dosage: 2 MG, 2X/DAY
     Route: 048
     Dates: start: 20100818, end: 20110330
  8. METHYCOBAL [Concomitant]
     Active Substance: METHYLCOBALAMIN
     Indication: SPINAL STENOSIS
     Dosage: 500 UG, 3X/DAY
     Route: 048
     Dates: start: 20091202
  9. LYRICA [Concomitant]
     Active Substance: PREGABALIN
     Indication: NEUROPATHY PERIPHERAL
     Dosage: 75 MG, 2X/DAY
     Route: 048
     Dates: start: 20100818, end: 20110805
  10. PREDNISOLONE. [Concomitant]
     Active Substance: PREDNISOLONE
     Indication: RHEUMATOID ARTHRITIS
     Dosage: 2.5 MG, 2X/DAY
     Route: 048
     Dates: start: 20010530, end: 20151007
  11. EXCEGRAN [Concomitant]
     Active Substance: ZONISAMIDE
     Indication: METASTASES TO CENTRAL NERVOUS SYSTEM
     Dosage: 100 MG, 2X/DAY
     Route: 048
     Dates: start: 20110228
  12. CANDESARTAN CILEXETIL. [Concomitant]
     Active Substance: CANDESARTAN CILEXETIL
     Indication: HYPERTENSION
     Dosage: UNK
     Route: 048
     Dates: start: 20110202, end: 20110330
  13. FOLIAMIN [Concomitant]
     Active Substance: FOLIC ACID
     Dosage: 5 MG, WEEKLY
     Route: 048
     Dates: start: 20101020, end: 20110330
  14. SUTENT [Suspect]
     Active Substance: SUNITINIB MALATE
     Indication: METASTATIC RENAL CELL CARCINOMA
     Dosage: 25 MG, 1X/DAY
     Route: 048
     Dates: start: 20100309, end: 20130111
  15. AMLODIN [Concomitant]
     Active Substance: AMLODIPINE BESYLATE
     Dosage: 10 MG, 1X/DAY
     Route: 048
     Dates: start: 20110413
  16. FOSAMAC [Suspect]
     Active Substance: ALENDRONATE SODIUM
     Indication: OSTEOPOROSIS
     Dosage: 35 MG, WEEKLY
     Route: 048
     Dates: start: 20100611, end: 20110414

REACTIONS (7)
  - Hypothyroidism [Unknown]
  - Platelet count decreased [Recovered/Resolved]
  - Sinusitis [Unknown]
  - Dizziness [Recovered/Resolved]
  - Pyrexia [Recovered/Resolved]
  - Osteonecrosis of jaw [Recovering/Resolving]
  - Neoplasm progression [Fatal]

NARRATIVE: CASE EVENT DATE: 20100314
